FAERS Safety Report 19179129 (Version 1)
Quarter: 2021Q2

REPORT INFORMATION
  Report Type: Spontaneous
  Country: US (occurrence: US)
  Receive Date: 20210426
  Receipt Date: 20210426
  Transmission Date: 20210717
  Serious: No
  Sender: FDA-Public Use
  Company Number: US-STRIDES ARCOLAB LIMITED-2020SP015870

PATIENT
  Sex: Male

DRUGS (1)
  1. DIPHENHYDRAMINE HCL + IBUPROFEN CAPSULES 25 MG/200 MG [Suspect]
     Active Substance: DIPHENHYDRAMINE HYDROCHLORIDE\IBUPROFEN
     Indication: INSOMNIA
     Dosage: UNK UNK, EVERY 6 HRS (1 SOFTGEL EVERY OTHER DAY AT BEDTIME)
     Route: 048
     Dates: start: 2020, end: 2020

REACTIONS (1)
  - Drug ineffective [Unknown]

NARRATIVE: CASE EVENT DATE: 2020
